FAERS Safety Report 7765700-4 (Version None)
Quarter: 2011Q3

REPORT INFORMATION
  Report Type: 
  Country: None (occurrence: None)
  Receive Date: 20110921
  Receipt Date: 20110914
  Transmission Date: 20111222
  Serious: Yes (Hospitalization)
  Sender: FDA-Public Use
  Company Number: US-ALEXION-A200900938

PATIENT
  Sex: Female

DRUGS (3)
  1. SOLIRIS [Suspect]
     Dosage: 900 MG
     Route: 042
     Dates: start: 20080604
  2. SOLIRIS [Suspect]
     Indication: PAROXYSMAL NOCTURNAL HAEMOGLOBINURIA
     Dosage: 600 MG Q WEEK
     Route: 042
     Dates: start: 20080507, end: 20080528
  3. PREDNISONE [Concomitant]
     Dosage: 40 MG, QD
     Route: 047

REACTIONS (4)
  - HAEMATURIA [None]
  - DEEP VEIN THROMBOSIS [None]
  - HYPOKALAEMIA [None]
  - HAEMOLYSIS [None]
